FAERS Safety Report 25139320 (Version 2)
Quarter: 2025Q2

REPORT INFORMATION
  Report Type: Report from Study
  Country: DE (occurrence: DE)
  Receive Date: 20250331
  Receipt Date: 20250416
  Transmission Date: 20250716
  Serious: Yes (Other)
  Sender: GILEAD
  Company Number: DE-GILEAD-2025-0708869

PATIENT
  Sex: Female

DRUGS (1)
  1. BICTEGRAVIR\EMTRICITABINE\TENOFOVIR ALAFENAMIDE [Suspect]
     Active Substance: BICTEGRAVIR\EMTRICITABINE\TENOFOVIR ALAFENAMIDE
     Indication: HIV infection
     Dosage: 275 MG, QD
     Route: 048

REACTIONS (3)
  - Oligohydramnios [Recovered/Resolved]
  - Failed induction of labour [Recovered/Resolved]
  - Maternal exposure during pregnancy [Recovered/Resolved]
